FAERS Safety Report 24576637 (Version 1)
Quarter: 2024Q4

REPORT INFORMATION
  Report Type: Spontaneous
  Country: US (occurrence: US)
  Receive Date: 20241104
  Receipt Date: 20241104
  Transmission Date: 20250115
  Serious: Yes (Other)
  Sender: SANOFI AVENTIS
  Company Number: US-SA-2024SA318019

PATIENT
  Age: 27 Year
  Sex: Male

DRUGS (1)
  1. DUPIXENT [Suspect]
     Active Substance: DUPILUMAB
     Indication: Dermatitis atopic
     Dosage: UNK

REACTIONS (9)
  - Staphylococcal bacteraemia [Unknown]
  - Rash erythematous [Unknown]
  - Rash pruritic [Unknown]
  - Skin burning sensation [Unknown]
  - Skin weeping [Not Recovered/Not Resolved]
  - Leukocytosis [Unknown]
  - Eosinophilia [Unknown]
  - Eczema [Unknown]
  - Rash [Unknown]
